FAERS Safety Report 6178395-0 (Version None)
Quarter: 2009Q2

REPORT INFORMATION
  Report Type: 
  Country: None (occurrence: None)
  Receive Date: 20090504
  Receipt Date: 20090427
  Transmission Date: 20091009
  Serious: No
  Sender: FDA-Public Use
  Company Number: JP-EISAI INC.-E2090-00721-SPO-JP

PATIENT
  Sex: Male

DRUGS (10)
  1. EXCEGRAN [Suspect]
     Route: 048
  2. PIMENOL [Suspect]
     Indication: TACHYARRHYTHMIA
     Route: 048
     Dates: end: 20090126
  3. ALEVIATIN [Suspect]
     Dosage: UNKNOWN
     Route: 042
     Dates: start: 20090126, end: 20090126
  4. MICARDIS [Concomitant]
     Indication: HYPERTENSION
     Route: 048
  5. MANIDILOT (MANIDIPINE HYDROCHLORIDE) [Concomitant]
     Indication: HYPERTENSION
  6. AMLODIPINE [Concomitant]
     Indication: HYPERTENSION
     Route: 048
  7. VALTREX [Concomitant]
     Indication: HERPES ZOSTER
     Route: 048
     Dates: start: 20090204, end: 20090216
  8. MERCAZOLE [Concomitant]
     Indication: HYPERTHYROIDISM
     Dates: start: 20090215
  9. WARFARIN [Concomitant]
     Dates: start: 20090215, end: 20090223
  10. WARFARIN [Concomitant]
     Dates: start: 20090223

REACTIONS (1)
  - CARDIAC ARREST [None]
